FAERS Safety Report 19723578 (Version 3)
Quarter: 2021Q3

REPORT INFORMATION
  Report Type: Spontaneous
  Country: US (occurrence: US)
  Receive Date: 20210820
  Receipt Date: 20210906
  Transmission Date: 20211014
  Serious: No
  Sender: FDA-Public Use
  Company Number: US-AMGEN-USASP2021127192

PATIENT
  Age: 73 Year
  Sex: Female
  Weight: 79.37 kg

DRUGS (2)
  1. OTEZLA [Suspect]
     Active Substance: APREMILAST
     Indication: GRANULOMA ANNULARE
     Dosage: 30 MILLIGRAM, BID
     Route: 048
     Dates: start: 20191112, end: 202007
  2. OTEZLA [Suspect]
     Active Substance: APREMILAST
     Indication: OFF LABEL USE
     Dosage: 30 MILLIGRAM, BID
     Route: 048
     Dates: start: 2020, end: 20200914

REACTIONS (4)
  - Therapeutic response decreased [Unknown]
  - Skin lesion [Unknown]
  - Off label use [Unknown]
  - Surgery [Unknown]

NARRATIVE: CASE EVENT DATE: 2020
